FAERS Safety Report 7812686-X (Version None)
Quarter: 2011Q4

REPORT INFORMATION
  Report Type: 
  Country: None (occurrence: None)
  Receive Date: 20111013
  Receipt Date: 20110930
  Transmission Date: 20120403
  Serious: Yes (Other)
  Sender: FDA-Public Use
  Company Number: US-ELI_LILLY_AND_COMPANY-US201108009496

PATIENT
  Sex: Male

DRUGS (4)
  1. ZYPREXA [Suspect]
     Indication: FRONTOTEMPORAL DEMENTIA
     Dosage: 15 MG, QD
     Route: 048
     Dates: start: 20080501
  2. ZYPREXA [Suspect]
     Dosage: 15 MG, 3/W
     Route: 048
     Dates: start: 20100101
  3. AMLODIPINE [Concomitant]
     Dosage: 5 MG, QD
  4. TRAZODONE HYDROCHLORIDE [Concomitant]
     Dosage: 50 MG, QD

REACTIONS (3)
  - FALL [None]
  - SUBDURAL HAEMORRHAGE [None]
  - OFF LABEL USE [None]
